FAERS Safety Report 6804056-8 (Version None)
Quarter: 2010Q2

REPORT INFORMATION
  Report Type: 
  Country: None (occurrence: None)
  Receive Date: 20100628
  Receipt Date: 20070102
  Transmission Date: 20101027
  Serious: Yes (Other)
  Sender: FDA-Public Use
  Company Number: US-PFIZER INC-2006128933

PATIENT
  Sex: Female
  Weight: 49 kg

DRUGS (2)
  1. SUTENT [Suspect]
     Indication: RENAL CELL CARCINOMA
     Route: 048
     Dates: start: 20060320, end: 20060601
  2. SLOW-FE [Concomitant]

REACTIONS (2)
  - SKIN DISCOLOURATION [None]
  - THROMBOCYTOPENIA [None]
